FAERS Safety Report 10033039 (Version 2)
Quarter: 2014Q1

REPORT INFORMATION
  Report Type: Report from Study
  Country: CI (occurrence: CI)
  Receive Date: 20140324
  Receipt Date: 20140324
  Transmission Date: 20141002
  Serious: Yes (Other)
  Sender: FDA-Public Use
  Company Number: CI-GILEAD-2013-0086172

PATIENT
  Age: 34 Year
  Sex: Female

DRUGS (5)
  1. TENOFOVIR DISOPROXIL FUMARATE [Suspect]
     Indication: HIV INFECTION
     Dosage: 300 MG, QD
     Route: 048
     Dates: start: 20120612
  2. EMTRICITABINE [Suspect]
     Indication: HIV INFECTION
     Dosage: 200 MG, QD
     Route: 048
     Dates: start: 20120612
  3. EFAVIRENZ [Suspect]
     Indication: HIV INFECTION
     Dosage: 600 MG, QD
     Route: 048
     Dates: start: 20120612
  4. QUINIMAX [Concomitant]
     Indication: MALARIA
     Dosage: UNK
     Dates: start: 20130812, end: 20130817
  5. PARACETAMOL [Concomitant]
     Indication: MALARIA
     Dosage: UNK
     Dates: start: 20130812, end: 20130817

REACTIONS (1)
  - Stillbirth [Recovered/Resolved]
